FAERS Safety Report 4565863-8 (Version None)
Quarter: 2005Q1

REPORT INFORMATION
  Report Type: 
  Country: None (occurrence: None)
  Receive Date: 20050131
  Receipt Date: 20041209
  Transmission Date: 20050727
  Serious: Yes (Other)
  Sender: FDA-Public Use
  Company Number: US-AMGEN-US102459

PATIENT
  Sex: Female
  Weight: 47.7 kg

DRUGS (4)
  1. EPOGEN [Suspect]
     Indication: RENAL FAILURE CHRONIC
     Dates: start: 20020311, end: 20040729
  2. ARANESP [Suspect]
     Indication: ANAEMIA
     Dates: start: 20021218, end: 20031228
  3. PREDNISONE [Concomitant]
     Dates: start: 20020213, end: 20021111
  4. HERBAL SUPPLEMENT [Concomitant]
     Dates: start: 20030301, end: 20040811

REACTIONS (4)
  - ANAEMIA [None]
  - BIOPSY BONE MARROW ABNORMAL [None]
  - BONE MARROW DEPRESSION [None]
  - CONDITION AGGRAVATED [None]
